FAERS Safety Report 23366656 (Version 3)
Quarter: 2024Q1

REPORT INFORMATION
  Report Type: Report from Study
  Country: BR (occurrence: BR)
  Receive Date: 20240104
  Receipt Date: 20240206
  Transmission Date: 20240410
  Serious: Yes (Other)
  Sender: FDA-Public Use
  Company Number: BR-JNJFOC-20231278094

PATIENT
  Age: 8 Decade
  Sex: Female
  Weight: 60 kg

DRUGS (2)
  1. SIMPONI [Suspect]
     Active Substance: GOLIMUMAB
     Indication: Rheumatoid arthritis
     Route: 058
     Dates: start: 2013, end: 2022
  2. SIMPONI [Suspect]
     Active Substance: GOLIMUMAB

REACTIONS (7)
  - Spinal operation [Unknown]
  - Stenosis [Unknown]
  - Tendon rupture [Unknown]
  - Influenza [Unknown]
  - Dyskinesia [Unknown]
  - Product dose omission issue [Unknown]
  - Treatment failure [Unknown]

NARRATIVE: CASE EVENT DATE: 20220101
